FAERS Safety Report 8026309-0 (Version None)
Quarter: 2012Q1

REPORT INFORMATION
  Report Type: 
  Country: None (occurrence: None)
  Receive Date: 20120105
  Receipt Date: 20111206
  Transmission Date: 20120608
  Serious: No
  Sender: FDA-Public Use
  Company Number: US-ABBOTT-11P-163-0881403-00

PATIENT
  Sex: Female
  Weight: 49.032 kg

DRUGS (2)
  1. SYNTHROID [Suspect]
     Dosage: 50MCG EOD, ALTERNATING 75MCG EOD
     Dates: start: 20111001
  2. SYNTHROID [Suspect]
     Indication: HYPOTHYROIDISM
     Dates: start: 20080101, end: 20111001

REACTIONS (3)
  - ALOPECIA [None]
  - HEADACHE [None]
  - MUSCLE SPASMS [None]
